FAERS Safety Report 25189699 (Version 1)
Quarter: 2025Q2

REPORT INFORMATION
  Report Type: Report from Study
  Country: MX (occurrence: MX)
  Receive Date: 20250411
  Receipt Date: 20250411
  Transmission Date: 20250716
  Serious: Yes (Death, Hospitalization, Other)
  Sender: ALEXION PHARMACEUTICALS
  Company Number: MX-AstraZeneca-CH-00846080A

PATIENT
  Age: 70 Year
  Weight: 58 kg

DRUGS (1)
  1. DURVALUMAB [Suspect]
     Active Substance: DURVALUMAB
     Indication: Hepatocellular carcinoma

REACTIONS (10)
  - Abnormal faeces [Unknown]
  - Faeces discoloured [Unknown]
  - Asthenia [Fatal]
  - Syncope [Unknown]
  - Renal failure [Unknown]
  - Coronary artery thrombosis [Unknown]
  - Fatigue [Unknown]
  - Fluid intake reduced [Unknown]
  - Mobility decreased [Unknown]
  - Somnolence [Unknown]
